FAERS Safety Report 5238639-6 (Version None)
Quarter: 2007Q1

REPORT INFORMATION
  Report Type: 
  Country: None (occurrence: None)
  Receive Date: 20070214
  Receipt Date: 20070214
  Transmission Date: 20070707
  Serious: Yes (Hospitalization)
  Sender: FDA-Public Use
  Company Number: None

PATIENT
  Sex: Male
  Weight: 100.6985 kg

DRUGS (3)
  1. VECTIBIX [Suspect]
     Indication: COLON CANCER
     Dosage: 6 MG/K9 Q2WKS IV
     Route: 042
     Dates: start: 20061110, end: 20061124
  2. VECTIBIX [Suspect]
     Indication: COLON CANCER
     Dosage: 6 MG/K9 Q2WKS IV
     Route: 042
     Dates: start: 20061208, end: 20061222
  3. VECTIBIX [Suspect]
     Indication: COLON CANCER
     Dosage: 6 MG/K9 Q2WKS IV
     Route: 042
     Dates: start: 20070105

REACTIONS (1)
  - CELLULITIS [None]
